FAERS Safety Report 5485032-7 (Version None)
Quarter: 2007Q4

REPORT INFORMATION
  Report Type: 
  Country: None (occurrence: None)
  Receive Date: 20071015
  Receipt Date: 20071005
  Transmission Date: 20080405
  Serious: Yes (Other)
  Sender: FDA-Public Use
  Company Number: PHBS2007BR16678

PATIENT
  Age: 44 Year
  Sex: Female
  Weight: 64 kg

DRUGS (1)
  1. CODATEN [Suspect]
     Indication: TENDONITIS
     Dosage: 1 TABLET, Q12H
     Route: 048
     Dates: start: 20071001

REACTIONS (11)
  - BLISTER [None]
  - CHOKING SENSATION [None]
  - DYSPHONIA [None]
  - DYSPNOEA [None]
  - GAIT DISTURBANCE [None]
  - PRURITUS [None]
  - RASH [None]
  - RASH ERYTHEMATOUS [None]
  - SWELLING [None]
  - THROAT IRRITATION [None]
  - TREATMENT NONCOMPLIANCE [None]
